FAERS Safety Report 10231511 (Version 1)
Quarter: 2014Q2

REPORT INFORMATION
  Report Type: Spontaneous
  Country: US (occurrence: US)
  Receive Date: 20140611
  Receipt Date: 20140611
  Transmission Date: 20141212
  Serious: No
  Sender: FDA-Public Use
  Company Number: US-MYLANLABS-2013S1016581

PATIENT
  Age: 69 Year
  Sex: Female
  Weight: 94.35 kg

DRUGS (5)
  1. VALACYCLOVIR TABLETS [Suspect]
     Indication: HERPES ZOSTER
     Route: 048
     Dates: start: 20130719, end: 20130724
  2. DIOVAN HCT [Concomitant]
     Indication: BLOOD PRESSURE INCREASED
     Dosage: DOSE:  160MG/12.5MG
     Route: 048
  3. AMLODIPINE [Concomitant]
     Indication: BLOOD PRESSURE INCREASED
     Route: 048
  4. DEXILANT [Concomitant]
     Indication: GASTROOESOPHAGEAL REFLUX DISEASE
     Route: 048
  5. CELEBREX [Concomitant]
     Indication: ARTHRITIS
     Route: 048

REACTIONS (1)
  - Migraine [Not Recovered/Not Resolved]
